FAERS Safety Report 14324036 (Version 1)
Quarter: 2017Q4

REPORT INFORMATION
  Report Type: Spontaneous
  Country: US (occurrence: US)
  Receive Date: 20171222
  Receipt Date: 20171222
  Transmission Date: 20180321
  Serious: No
  Sender: FDA-Public Use
  Company Number: None

PATIENT
  Age: 57 Year
  Sex: Male

DRUGS (1)
  1. AMPYRA [Suspect]
     Active Substance: DALFAMPRIDINE
     Indication: MULTIPLE SCLEROSIS
     Route: 048
     Dates: start: 20170922

REACTIONS (12)
  - Fall [None]
  - Haemoglobin decreased [None]
  - Nausea [None]
  - Blood creatinine decreased [None]
  - Limb injury [None]
  - Humerus fracture [None]
  - Comminuted fracture [None]
  - Blood glucose increased [None]
  - Red blood cell count decreased [None]
  - Vomiting [None]
  - Haematocrit decreased [None]
  - Prothrombin time prolonged [None]

NARRATIVE: CASE EVENT DATE: 20171218
